FAERS Safety Report 6453771-7 (Version None)
Quarter: 2009Q4

REPORT INFORMATION
  Report Type: 
  Country: None (occurrence: None)
  Receive Date: 20091117
  Receipt Date: 20091104
  Transmission Date: 20100525
  Serious: Yes (Hospitalization)
  Sender: FDA-Public Use
  Company Number: 232734J09USA

PATIENT
  Age: 61 Year
  Sex: Male

DRUGS (6)
  1. REBIF [Suspect]
     Indication: MULTIPLE SCLEROSIS
     Dosage: 3 IN 1 WEEKS, SUBCUTANEOUS
     Route: 058
     Dates: start: 20091026, end: 20091102
  2. DILANTIN (PHENYTOIN /00017401/) [Concomitant]
  3. SYNTHROID [Concomitant]
  4. LISINOPRIL (LISINOPRIL DIHYDRATE) [Concomitant]
  5. LIPITOR [Concomitant]
  6. VIMPAT [Concomitant]

REACTIONS (6)
  - ACTIVITIES OF DAILY LIVING IMPAIRED [None]
  - CONVULSION [None]
  - HYPERSOMNIA [None]
  - RESTLESSNESS [None]
  - SPEECH DISORDER [None]
  - URINARY INCONTINENCE [None]
